FAERS Safety Report 21244948 (Version 1)
Quarter: 2022Q3

REPORT INFORMATION
  Report Type: Spontaneous
  Country: FR (occurrence: FR)
  Receive Date: 20220823
  Receipt Date: 20220823
  Transmission Date: 20221027
  Serious: Yes (Hospitalization)
  Sender: FDA-Public Use
  Company Number: None

PATIENT
  Age: 82 Year
  Sex: Female
  Weight: 65 kg

DRUGS (3)
  1. TOCILIZUMAB [Suspect]
     Active Substance: TOCILIZUMAB
     Indication: Giant cell arteritis
     Route: 058
     Dates: start: 20220415, end: 20220524
  2. PREDNISONE [Suspect]
     Active Substance: PREDNISONE
     Indication: Giant cell arteritis
     Dosage: INITIALLY AT A DOSAGE OF 40MG PER DAY, DECREASING TO 10MG PER DAY
     Route: 065
     Dates: start: 20220121, end: 20220601
  3. INNOVAIR [Concomitant]
     Active Substance: BECLOMETHASONE DIPROPIONATE\FORMOTEROL
     Indication: Asthma
     Dosage: 2 INHALATIONS MORNING AND EVENING

REACTIONS (1)
  - Brain abscess [Recovering/Resolving]

NARRATIVE: CASE EVENT DATE: 20220525
